FAERS Safety Report 20205763 (Version 2)
Quarter: 2021Q4

REPORT INFORMATION
  Report Type: Other
  Country: US (occurrence: None)
  Receive Date: 20211220
  Receipt Date: 20211223
  Transmission Date: 20220303
  Serious: Yes (Other)
  Sender: FDA-Public Use
  Company Number: US-ROCHE-1923766

PATIENT
  Age: 63 Year
  Sex: Female

DRUGS (3)
  1. VALCYTE [Suspect]
     Active Substance: VALGANCICLOVIR HYDROCHLORIDE
     Indication: Lung transplant rejection
     Dosage: TAKE 1 TAB DAILY ON MONDAY, WEDNESDAY + FRIDAY
     Route: 048
  2. VALCYTE [Suspect]
     Active Substance: VALGANCICLOVIR HYDROCHLORIDE
     Indication: Cytomegalovirus infection
  3. CELLCEPT [Suspect]
     Active Substance: MYCOPHENOLATE MOFETIL
     Indication: Lung transplant rejection
     Route: 065

REACTIONS (4)
  - Cerebrovascular accident [Unknown]
  - Ill-defined disorder [Unknown]
  - Off label use [Unknown]
  - Ill-defined disorder [Unknown]

NARRATIVE: CASE EVENT DATE: 20160401
